FAERS Safety Report 5899986-8 (Version None)
Quarter: 2008Q3

REPORT INFORMATION
  Report Type: 
  Country: None (occurrence: None)
  Receive Date: 20080926
  Receipt Date: 20080916
  Transmission Date: 20090109
  Serious: Yes (Hospitalization)
  Sender: FDA-Public Use
  Company Number: IN-ELI_LILLY_AND_COMPANY-IN200809005083

PATIENT
  Sex: Female
  Weight: 96 kg

DRUGS (2)
  1. HUMALOG [Suspect]
     Indication: DIABETES MELLITUS
     Dosage: 54 U, EACH MORNING
     Route: 058
     Dates: start: 20050101
  2. HUMALOG [Suspect]
     Dosage: 50 U, EACH EVENING
     Route: 058
     Dates: start: 20050101

REACTIONS (2)
  - INJECTION SITE ERYTHEMA [None]
  - UPPER RESPIRATORY TRACT INFECTION [None]
